FAERS Safety Report 4491143-5 (Version None)
Quarter: 2004Q3

REPORT INFORMATION
  Report Type: 
  Country: None (occurrence: None)
  Receive Date: 20040927
  Receipt Date: 20040802
  Transmission Date: 20050211
  Serious: No
  Sender: FDA-Public Use
  Company Number: USA040874241

PATIENT
  Age: 5 Year
  Sex: Male
  Weight: 23 kg

DRUGS (1)
  1. STRATTERA [Suspect]
     Indication: PERVASIVE DEVELOPMENTAL DISORDER
     Dosage: 40 MG/1 IN THE EVENING
     Dates: start: 20040601

REACTIONS (2)
  - PRESCRIBED OVERDOSE [None]
  - VOMITING [None]
